FAERS Safety Report 9380816 (Version 1)
Quarter: 2013Q3

REPORT INFORMATION
  Report Type: Report from Study
  Country: US (occurrence: US)
  Receive Date: 20130702
  Receipt Date: 20130702
  Transmission Date: 20140515
  Serious: Yes (Hospitalization)
  Sender: FDA-Public Use
  Company Number: US-TEVA-389335USA

PATIENT
  Age: 61 Year
  Sex: Female
  Weight: 74.55 kg

DRUGS (23)
  1. TREANDA [Suspect]
     Indication: NON-SMALL CELL LUNG CANCER
     Dosage: 190-220MG- C2 DAY 17
     Route: 042
     Dates: start: 20130117, end: 20130208
  2. IRINOTECAN [Suspect]
     Indication: NON-SMALL CELL LUNG CANCER
     Dosage: 7.1429 MG/M2 DAILY;
     Route: 042
     Dates: start: 20130117, end: 20130207
  3. METFORMIN [Concomitant]
     Dosage: 1700 MILLIGRAM DAILY;
     Route: 048
  4. ALBUTEROL CFC FREE [Concomitant]
     Indication: WHEEZING
     Route: 055
  5. LEXAPRO [Concomitant]
     Dosage: 10 MILLIGRAM DAILY;
     Route: 048
  6. PERCOGESIC [Concomitant]
     Dosage: 325MG ACETAMINOPHEN/30 MG PHENYLTOLOXAMINE
     Route: 048
  7. PRILOSEC [Concomitant]
     Dosage: 20 MILLIGRAM DAILY;
     Route: 048
  8. SINGULAIR [Concomitant]
     Dosage: 4 MILLIGRAM DAILY;
     Route: 048
  9. VASOTEC [Concomitant]
     Dosage: 20 MILLIGRAM DAILY;
     Route: 048
  10. METOPROLOL [Concomitant]
     Route: 048
  11. NIACIN [Concomitant]
     Dosage: 500 MILLIGRAM DAILY;
     Route: 048
  12. TRAMADOL [Concomitant]
     Dosage: 50 MILLIGRAM DAILY;
     Route: 048
  13. DEXAMETHASONE [Concomitant]
     Dosage: 16 MILLIGRAM DAILY;
     Route: 048
     Dates: start: 20130119, end: 20130120
  14. DEXAMETHASONE [Concomitant]
     Dosage: 8 MILLIGRAM DAILY;
     Route: 048
     Dates: start: 20130121
  15. LOMOTIL [Concomitant]
     Route: 048
  16. ZOFRAN [Concomitant]
     Indication: NAUSEA
     Dosage: BID FOR 3 DAYS STARTING ON DAY 3 OF EACH CHEMOTHERAPY THEN EVERY 12 HOURS AS NEEDED
     Route: 048
  17. CODEINE SULFATE [Concomitant]
     Indication: COUGH
     Route: 048
  18. ASPIRIN [Concomitant]
     Dosage: 81 MILLIGRAM DAILY;
     Route: 048
  19. DRAMAMINE [Concomitant]
     Indication: SLEEP DISORDER
     Dosage: 50 MILLIGRAM DAILY;
     Route: 048
  20. ATORVASTATIN [Concomitant]
     Dosage: 40 MILLIGRAM DAILY;
     Route: 048
  21. CLARITIN [Concomitant]
  22. GLIPIZIDE [Concomitant]
     Dosage: 20 MILLIGRAM DAILY; EXTENDED RELEASE
     Route: 048
  23. ACYCLOVIR [Concomitant]
     Indication: BLISTER
     Dosage: 25 PERCENT DAILY;
     Route: 061

REACTIONS (1)
  - Pneumonitis [Recovered/Resolved]
